FAERS Safety Report 4711151-6 (Version None)
Quarter: 2005Q3

REPORT INFORMATION
  Report Type: 
  Country: None (occurrence: None)
  Receive Date: 20050708
  Receipt Date: 20050705
  Transmission Date: 20060218
  Serious: Yes (Disabling)
  Sender: FDA-Public Use
  Company Number: GBWYE738513JUN05

PATIENT
  Age: 32 Year
  Sex: Male

DRUGS (3)
  1. EFFEXOR [Suspect]
     Indication: DEPRESSION
     Dosage: 75 + 37.5 MG TWO TIMES PER DAY ORAL
     Route: 048
     Dates: start: 20020521, end: 20040902
  2. EFFEXOR [Suspect]
     Indication: DEPRESSION
     Dosage: 75 + 37.5 MG TWO TIMES PER DAY ORAL
     Route: 048
     Dates: start: 20050104
  3. BETAHISTINE (BETAHISTINE) [Concomitant]
     Dosage: 16MG

REACTIONS (4)
  - BALANCE DISORDER [None]
  - CEREBELLAR ATAXIA [None]
  - COORDINATION ABNORMAL [None]
  - DYSARTHRIA [None]
